FAERS Safety Report 5716452-0 (Version None)
Quarter: 2008Q2

REPORT INFORMATION
  Report Type: 
  Country: None (occurrence: None)
  Receive Date: 20080415
  Receipt Date: 20070508
  Transmission Date: 20081010
  Serious: Yes (Hospitalization)
  Sender: FDA-Public Use
  Company Number: 2007-02208

PATIENT
  Age: 85 Year
  Sex: Male

DRUGS (3)
  1. FERRLECIT [Suspect]
     Indication: HAEMODIALYSIS
     Dosage: 62.5 MG, OVER 20 MINUTES, INTRAVENOUS
     Route: 042
     Dates: start: 20070423
  2. FERRLECIT [Suspect]
     Indication: IRON DEFICIENCY ANAEMIA
     Dosage: 62.5 MG, OVER 20 MINUTES, INTRAVENOUS
     Route: 042
     Dates: start: 20070423
  3. EPOGEN [Concomitant]

REACTIONS (3)
  - DISORIENTATION [None]
  - FLUSHING [None]
  - LOSS OF CONSCIOUSNESS [None]
